FAERS Safety Report 7806722-4 (Version None)
Quarter: 2011Q4

REPORT INFORMATION
  Report Type: 
  Country: None (occurrence: None)
  Receive Date: 20111011
  Receipt Date: 20111011
  Transmission Date: 20120403
  Serious: Yes (Hospitalization, Other)
  Sender: FDA-Public Use
  Company Number: PHHO2007US16366

PATIENT
  Sex: Female
  Weight: 83.7 kg

DRUGS (4)
  1. GILENYA [Suspect]
     Indication: MULTIPLE SCLEROSIS
     Dosage: 1.25 MG, UNK
     Route: 048
     Dates: start: 20070910
  2. ATENOLOL [Suspect]
     Indication: HYPERTENSION
     Dosage: 75 MG, QD
     Route: 048
     Dates: end: 20070911
  3. OLMESARTAN MEDOXOMIL [Concomitant]
  4. ATENOLOL [Suspect]
     Dosage: 25 MG, QD
     Route: 048
     Dates: start: 20070911

REACTIONS (4)
  - HEART RATE DECREASED [None]
  - ELECTROCARDIOGRAM PR PROLONGATION [None]
  - ATRIOVENTRICULAR BLOCK FIRST DEGREE [None]
  - BRADYCARDIA [None]
